FAERS Safety Report 10222467 (Version 2)
Quarter: 2014Q2

REPORT INFORMATION
  Report Type: Spontaneous
  Country: US (occurrence: US)
  Receive Date: 20140606
  Receipt Date: 20140624
  Transmission Date: 20141212
  Serious: Yes (Hospitalization, Other)
  Sender: FDA-Public Use
  Company Number: US-B.I. PHARMACEUTICALS,INC./RIDGEFIELD-2014-BI-24850BP

PATIENT
  Age: 58 Year
  Sex: Female
  Weight: 74 kg

DRUGS (15)
  1. ATROVENT INHALATION SOLUTION [Suspect]
     Indication: CHRONIC OBSTRUCTIVE PULMONARY DISEASE
     Dosage: 136 MCG
     Route: 055
     Dates: start: 20121031
  2. ATROVENT INHALATION SOLUTION [Suspect]
     Dosage: 272 MCG
     Route: 055
     Dates: start: 2004, end: 20121031
  3. HYDROCODONE [Concomitant]
     Indication: RHEUMATOID ARTHRITIS
     Dosage: STRENGTH: 7.5/325 MG; DAILY DOSE: 30/ 1300 MG
     Route: 048
  4. LEVOTHYROXINE [Concomitant]
     Indication: THYROIDECTOMY
     Dosage: 25 MCG
     Route: 048
  5. FOLIC ACID [Concomitant]
     Dosage: 1 MG
     Route: 048
  6. FAMOTIDINE [Concomitant]
     Indication: GASTROOESOPHAGEAL REFLUX DISEASE
     Dosage: 40 MG
     Route: 048
  7. DIAZEPAM [Concomitant]
     Indication: ANXIETY
     Dosage: 40 MG
     Route: 048
  8. LAMOTRIDINE [Concomitant]
     Indication: MOOD SWINGS
     Dosage: 25 MG
     Route: 048
  9. SERTRALINE [Concomitant]
     Indication: DEPRESSION
     Dosage: 50 MG
     Route: 048
  10. TRAZADONE [Concomitant]
     Indication: DEPRESSION
     Dosage: 150 MG
     Route: 048
  11. BETAXOLOL [Concomitant]
     Indication: HEART RATE INCREASED
     Dosage: 10 MG
     Route: 048
  12. SIMVASTATIN [Concomitant]
     Indication: BLOOD CHOLESTEROL INCREASED
     Dosage: 40 MG
     Route: 048
  13. FLOVENT [Concomitant]
     Indication: CHRONIC OBSTRUCTIVE PULMONARY DISEASE
     Route: 055
  14. XOPENEX [Concomitant]
     Indication: CHRONIC OBSTRUCTIVE PULMONARY DISEASE
     Route: 055
  15. CALCIUM [Concomitant]
     Indication: OSTEOPOROSIS
     Dosage: 1200 MG
     Route: 065

REACTIONS (8)
  - Hip fracture [Recovered/Resolved]
  - Cardiac septal defect [Not Recovered/Not Resolved]
  - Fall [Recovered/Resolved]
  - Abasia [Not Recovered/Not Resolved]
  - Pulmonary mass [Not Recovered/Not Resolved]
  - Pericardial effusion [Not Recovered/Not Resolved]
  - Osteoarthritis [Not Recovered/Not Resolved]
  - Overdose [Recovered/Resolved]
